FAERS Safety Report 9254586 (Version 1)
Quarter: 2013Q2

REPORT INFORMATION
  Report Type: Spontaneous
  Country: GB (occurrence: None)
  Receive Date: 20130422
  Receipt Date: 20130422
  Transmission Date: 20140414
  Serious: Yes (Other)
  Sender: FDA-Public Use
  Company Number: AUR-APL-2013-03137

PATIENT
  Age: 66 Year
  Sex: Female
  Weight: 48.5 kg

DRUGS (3)
  1. CITALOPRAM (CITALOPRAM) [Suspect]
     Indication: DEPRESSION
     Route: 048
     Dates: start: 20110426, end: 20130315
  2. CALCICHEW D3 (LEKOVIT CA) [Concomitant]
  3. RISEDRONATE (RISEDRONATE SODIUM) [Concomitant]

REACTIONS (4)
  - Lip swelling [None]
  - Oropharyngeal pain [None]
  - Ear pain [None]
  - Unevaluable event [None]
